FAERS Safety Report 8163709-2 (Version None)
Quarter: 2012Q1

REPORT INFORMATION
  Report Type: 
  Country: None (occurrence: None)
  Receive Date: 20120224
  Receipt Date: 20120216
  Transmission Date: 20120608
  Serious: Yes (Other)
  Sender: FDA-Public Use
  Company Number: US-PFIZER INC-2012029189

PATIENT
  Age: 24 Year
  Sex: Female

DRUGS (3)
  1. PACLITAXEL [Suspect]
     Indication: BREAST CANCER
     Dosage: 4 CYCLES
  2. CYCLOPHOSPHAMIDE [Suspect]
     Indication: BREAST CANCER
     Dosage: 4 CYCLES
  3. DOXORUBICIN HCL [Suspect]
     Indication: BREAST CANCER
     Dosage: 4 CYCLES

REACTIONS (3)
  - INSOMNIA [None]
  - COGNITIVE DISORDER [None]
  - MEMORY IMPAIRMENT [None]
